FAERS Safety Report 6640053-3 (Version None)
Quarter: 2010Q1

REPORT INFORMATION
  Report Type: 
  Country: None (occurrence: None)
  Receive Date: 20100318
  Receipt Date: 20100305
  Transmission Date: 20100710
  Serious: Yes (Other)
  Sender: FDA-Public Use
  Company Number: GB-ELI_LILLY_AND_COMPANY-GB201003002378

PATIENT
  Sex: Male

DRUGS (3)
  1. ZYPREXA [Suspect]
     Dosage: 20 MG, DAILY (1/D)
  2. VALPROATE SODIUM [Concomitant]
  3. LITHIUM [Concomitant]

REACTIONS (1)
  - GASTROINTESTINAL NECROSIS [None]
